FAERS Safety Report 8964136 (Version 1)
Quarter: 2012Q4

REPORT INFORMATION
  Report Type: 
  Country: US (occurrence: US)
  Receive Date: 20121214
  Receipt Date: 20121214
  Transmission Date: 20130627
  Serious: No
  Sender: FDA-Public Use
  Company Number: US-VERTEX PHARMACEUTICALS INC.-2012-025907

PATIENT
  Age: 59 Year
  Sex: Male
  Weight: 72 kg

DRUGS (9)
  1. VX-950 (TELAPREVIR) [Suspect]
     Indication: HEPATITIS C
     Dosage: 750 mg, tid
     Route: 048
  2. PEGASYS [Concomitant]
     Indication: HEPATITIS C
  3. RIBAPAK [Concomitant]
     Dosage: 1200/day
  4. VITAMIN D /00107901/ [Concomitant]
  5. FISH OIL [Concomitant]
  6. COLON CAP CLEANSER [Concomitant]
  7. LOSARTAN POTASSIUM [Concomitant]
     Dosage: 100 mg, UNK
  8. SUBOXONE [Concomitant]
  9. CLONIDINE [Concomitant]

REACTIONS (1)
  - White blood cell count decreased [Unknown]
